FAERS Safety Report 9840846 (Version 1)
Quarter: 2013Q4

REPORT INFORMATION
  Report Type: Spontaneous
  Country: US (occurrence: None)
  Receive Date: 20131213
  Receipt Date: 20131213
  Transmission Date: 20140711
  Serious: Yes (Other)
  Sender: FDA-Public Use
  Company Number: 2012MA012936

PATIENT
  Sex: Female

DRUGS (1)
  1. METOCLOPRAMIDE (METOCLOPRAMIDE) [Suspect]
     Dates: start: 200501

REACTIONS (1)
  - Tardive dyskinesia [None]
